FAERS Safety Report 15606987 (Version 5)
Quarter: 2019Q2

REPORT INFORMATION
  Report Type: Spontaneous
  Country: US (occurrence: US)
  Receive Date: 20181112
  Receipt Date: 20190508
  Transmission Date: 20190711
  Serious: Yes (Hospitalization, Other)
  Sender: FDA-Public Use
  Company Number: US-GLAXOSMITHKLINE-US2018GSK203731

PATIENT
  Age: 57 Year
  Sex: Female

DRUGS (5)
  1. ADEMPAS [Concomitant]
     Active Substance: RIOCIGUAT
     Indication: PRODUCT USED FOR UNKNOWN INDICATION
  2. FLOLAN DILUENT PH 12 [Suspect]
     Active Substance: GLYCINE\MANNITOL\SODIUM CHLORIDE
     Dosage: UNK
     Route: 042
     Dates: start: 20161205
  3. FLOLAN [Suspect]
     Active Substance: EPOPROSTENOL SODIUM
     Indication: PULMONARY ARTERIAL HYPERTENSION
     Dosage: 23 DF, CO
     Route: 042
     Dates: start: 20160624
  4. FLOLAN [Suspect]
     Active Substance: EPOPROSTENOL SODIUM
     Dosage: 25 DF, CO
     Route: 042
     Dates: start: 20160624
  5. FLOLAN DILUENT PH 12 [Suspect]
     Active Substance: GLYCINE\MANNITOL\SODIUM CHLORIDE
     Indication: PULMONARY ARTERIAL HYPERTENSION
     Dosage: UNK
     Route: 042
     Dates: start: 20161205

REACTIONS (3)
  - Lung transplant [Unknown]
  - Catheterisation cardiac [Unknown]
  - Cardiac disorder [Unknown]

NARRATIVE: CASE EVENT DATE: 20190106
